FAERS Safety Report 9494849 (Version 1)
Quarter: 2013Q3

REPORT INFORMATION
  Report Type: Spontaneous
  Country: US (occurrence: US)
  Receive Date: 20130903
  Receipt Date: 20130903
  Transmission Date: 20140515
  Serious: Yes (Hospitalization)
  Sender: FDA-Public Use
  Company Number: US-JNJFOC-20130812413

PATIENT
  Age: 86 Year
  Sex: Female

DRUGS (1)
  1. TYLENOL COLD [Suspect]
     Indication: MULTIPLE ALLERGIES
     Route: 048

REACTIONS (2)
  - Loss of consciousness [Recovered/Resolved]
  - Convulsion [Recovered/Resolved]
